FAERS Safety Report 8919388 (Version 1)
Quarter: 2012Q4

REPORT INFORMATION
  Report Type: Report from Study
  Country: US (occurrence: US)
  Receive Date: 20121121
  Receipt Date: 20121121
  Transmission Date: 20130627
  Serious: Yes (Hospitalization)
  Sender: FDA-Public Use
  Company Number: US-ABBOTT-12P-163-1008600-00

PATIENT
  Age: 22 None
  Sex: Female
  Weight: 63.56 kg

DRUGS (2)
  1. HUMIRA [Suspect]
     Indication: CROHN^S DISEASE
     Dates: start: 201112, end: 201205
  2. HUMIRA [Suspect]
     Dates: start: 201211

REACTIONS (6)
  - Intestinal stenosis [Unknown]
  - Crohn^s disease [Recovering/Resolving]
  - Abdominal pain lower [Recovered/Resolved]
  - Inflammation [Unknown]
  - Gastrointestinal oedema [Unknown]
  - Crohn^s disease [Unknown]
